FAERS Safety Report 5639203-7 (Version None)
Quarter: 2008Q1

REPORT INFORMATION
  Report Type: 
  Country: None (occurrence: None)
  Receive Date: 20080131
  Receipt Date: 20071101
  Transmission Date: 20080703
  Serious: Yes (Death, Hospitalization)
  Sender: FDA-Public Use
  Company Number: 163-21880-07101183

PATIENT
  Age: 57 Year
  Sex: Female

DRUGS (1)
  1. REVLIMID [Suspect]
     Indication: MULTIPLE MYELOMA
     Dosage: 25 MG, 1 IN 1 D, ORAL
     Route: 048
     Dates: start: 20070910, end: 20070916

REACTIONS (8)
  - CEREBRAL HAEMORRHAGE [None]
  - DEATH [None]
  - GINGIVAL BLEEDING [None]
  - NEUROPATHY PERIPHERAL [None]
  - PETECHIAE [None]
  - PLATELET COUNT DECREASED [None]
  - ULCER [None]
  - URINARY TRACT INFECTION [None]
